FAERS Safety Report 10027631 (Version 1)
Quarter: 2014Q1

REPORT INFORMATION
  Report Type: Spontaneous
  Country: US (occurrence: None)
  Receive Date: 20140219
  Receipt Date: 20140219
  Transmission Date: 20141002
  Serious: Yes (Other)
  Sender: FDA-Public Use
  Company Number: IPC201103-000348

PATIENT
  Sex: 0

DRUGS (7)
  1. METOCLOPRAMIDE HYDROCHLORIDE [Suspect]
     Dates: start: 200401, end: 201011
  2. METOCLOPRAMIDE [Suspect]
     Dates: start: 200401, end: 201011
  3. METOCLOPRAMIDE [Suspect]
     Dates: start: 200401, end: 201011
  4. METOCLOPRAMIDE [Suspect]
     Dates: start: 200401, end: 201011
  5. METOCLOPRAMIDE [Suspect]
     Dates: start: 200401, end: 201011
  6. METOCLOPRAMIDE [Suspect]
     Dates: start: 200401, end: 201011
  7. METOCLOPRAMIDE [Suspect]
     Dates: start: 200401, end: 201011

REACTIONS (5)
  - Tardive dyskinesia [None]
  - Extrapyramidal disorder [None]
  - Parkinson^s disease [None]
  - Dyskinesia [None]
  - Tremor [None]
